FAERS Safety Report 6252219-5 (Version None)
Quarter: 2009Q2

REPORT INFORMATION
  Report Type: 
  Country: None (occurrence: None)
  Receive Date: 20090629
  Receipt Date: 20090529
  Transmission Date: 20091009
  Serious: Yes (Hospitalization)
  Sender: FDA-Public Use
  Company Number: ADR2142009

PATIENT
  Age: 22 Year
  Sex: Male

DRUGS (3)
  1. CITALOPRAM HYDROBROMIDE [Suspect]
     Indication: OVERDOSE
     Dosage: OVERDOSED WITH 28X20 MG = 560 MG CITALOPRAM ORAL
     Route: 048
     Dates: start: 20090519
  2. CITALOPRAM HYDROBROMIDE [Suspect]
     Indication: SELF-MEDICATION
     Dosage: OVERDOSED WITH 28X20 MG = 560 MG CITALOPRAM ORAL
     Route: 048
     Dates: start: 20090519
  3. ALCOHOL [Concomitant]

REACTIONS (8)
  - CARDIOVASCULAR DISORDER [None]
  - ELECTROCARDIOGRAM QRS COMPLEX PROLONGED [None]
  - ELECTROCARDIOGRAM QT PROLONGED [None]
  - INTENTIONAL OVERDOSE [None]
  - LEFT VENTRICULAR HYPERTROPHY [None]
  - REFUSAL OF TREATMENT BY PATIENT [None]
  - SINUS BRADYCARDIA [None]
  - SUICIDE ATTEMPT [None]
